FAERS Safety Report 18244230 (Version 1)
Quarter: 2020Q3

REPORT INFORMATION
  Report Type: Spontaneous
  Country: BE (occurrence: BE)
  Receive Date: 20200909
  Receipt Date: 20200909
  Transmission Date: 20201103
  Serious: Yes (Life-Threatening, Other)
  Sender: FDA-Public Use
  Company Number: BE-AUROBINDO-AUR-APL-2020-046882

PATIENT
  Age: 73 Year
  Sex: Male
  Weight: 89 kg

DRUGS (15)
  1. ENOXAPARIN [Interacting]
     Active Substance: ENOXAPARIN
     Indication: THROMBOSIS PROPHYLAXIS
     Dosage: 20 MILLIGRAM, ONCE A DAY
     Route: 058
     Dates: start: 20200413
  2. AMIODARONE 200MG [Suspect]
     Active Substance: AMIODARONE
     Indication: ATRIAL FIBRILLATION
     Dosage: 300 MILLIGRAM
     Route: 065
  3. ZYVOXID [Interacting]
     Active Substance: LINEZOLID
     Indication: STAPHYLOCOCCAL INFECTION
     Dosage: 2 DOSAGE FORM, ONCE A DAY
     Route: 041
     Dates: start: 20200702
  4. DIFLUCAN [Interacting]
     Active Substance: FLUCONAZOLE
     Indication: SUPERINFECTION
  5. LYSOMUCIL [Concomitant]
     Active Substance: ACETYLCYSTEINE
     Indication: PRODUCT USED FOR UNKNOWN INDICATION
     Dosage: 1 DOSAGE FORM, ONCE A DAY,BY JEJUNAL TUBE
     Route: 065
  6. ZYVOXID [Interacting]
     Active Substance: LINEZOLID
     Indication: INTERVERTEBRAL DISCITIS
  7. FLAGYL [Interacting]
     Active Substance: METRONIDAZOLE\METRONIDAZOLE HYDROCHLORIDE
     Indication: KLEBSIELLA INFECTION
  8. OMEPRAZOL [Concomitant]
     Active Substance: OMEPRAZOLE
     Indication: PRODUCT USED FOR UNKNOWN INDICATION
     Dosage: MASTERFUL PREPARATION OF OMEPRAZOLE IN SUSPENSION PRODUCED BY THE HOSPITAL (BY JEJUNAL TUBE
     Route: 065
  9. CEFEPIME [Interacting]
     Active Substance: CEFEPIME HYDROCHLORIDE
     Indication: LUNG DISORDER
     Dosage: 2 GRAM, TWO TIMES A DAY
     Route: 042
     Dates: start: 20200707
  10. FLAGYL [Interacting]
     Active Substance: METRONIDAZOLE\METRONIDAZOLE HYDROCHLORIDE
     Indication: SUPERINFECTION
     Dosage: 1500 MILLIGRAM
     Route: 042
     Dates: start: 20200529
  11. ISOTEN [Concomitant]
     Active Substance: BISOPROLOL FUMARATE
     Indication: PRODUCT USED FOR UNKNOWN INDICATION
     Dosage: 1 DOSAGE FORM, ONCE A DAY
     Route: 065
  12. DIFLUCAN [Interacting]
     Active Substance: FLUCONAZOLE
     Indication: CANDIDA INFECTION
     Dosage: 400 MILLIGRAM
     Route: 042
     Dates: start: 20200529
  13. CEFTAZIDIME. [Interacting]
     Active Substance: CEFTAZIDIME
     Indication: LUNG DISORDER
     Dosage: 2 GRAM, TWO TIMES A DAY
     Route: 042
     Dates: start: 20200710
  14. PARACETAMOL [Concomitant]
     Active Substance: ACETAMINOPHEN
     Indication: PRODUCT USED FOR UNKNOWN INDICATION
     Dosage: 500 MILLIGRAM, 3 TIMES A DAY,/ 6H TAB (BY JEJUNAL TUBE
     Route: 065
  15. ASPEGIC [Concomitant]
     Indication: PRODUCT USED FOR UNKNOWN INDICATION
     Dosage: 1 DOSAGE FORM, ONCE A DAY
     Route: 065

REACTIONS (3)
  - Skin wound [Recovered/Resolved]
  - Thrombocytopenia [Recovered/Resolved]
  - Skin haemorrhage [Recovered/Resolved]

NARRATIVE: CASE EVENT DATE: 20200705
